FAERS Safety Report 5203775-7 (Version None)
Quarter: 2007Q1

REPORT INFORMATION
  Report Type: 
  Country: None (occurrence: None)
  Receive Date: 20070109
  Receipt Date: 20070109
  Transmission Date: 20070707
  Serious: Yes (Hospitalization)
  Sender: FDA-Public Use
  Company Number: None

PATIENT
  Sex: Male
  Weight: 124.7392 kg

DRUGS (2)
  1. PACLITAXEL [Suspect]
  2. IRINOTECAN HCL [Suspect]

REACTIONS (3)
  - ANAEMIA [None]
  - PNEUMONIA [None]
  - RESPIRATORY FAILURE [None]
